FAERS Safety Report 9384121 (Version 1)
Quarter: 2013Q3

REPORT INFORMATION
  Report Type: Spontaneous
  Country: FR (occurrence: FR)
  Receive Date: 20130705
  Receipt Date: 20130705
  Transmission Date: 20140515
  Serious: Yes (Life-Threatening)
  Sender: FDA-Public Use
  Company Number: FR-JNJFOC-20130619430

PATIENT
  Age: 30 Year
  Sex: Female

DRUGS (6)
  1. REMICADE [Suspect]
     Indication: PRODUCT USED FOR UNKNOWN INDICATION
     Dosage: PATIENT HAD RECEIVED 2 INFUSIONS ON RESTART
     Route: 042
  2. REMICADE [Suspect]
     Indication: PRODUCT USED FOR UNKNOWN INDICATION
     Dosage: UNTIL MAR-2006, THE PATIENT RECEIVED 15 INJECTIONS
     Route: 042
     Dates: end: 200603
  3. REMICADE [Suspect]
     Indication: PRODUCT USED FOR UNKNOWN INDICATION
     Dosage: THIRD INFUSION ON RESTART
     Route: 042
     Dates: start: 20130307, end: 20130307
  4. ATARAX [Concomitant]
     Indication: PREMEDICATION
     Route: 065
     Dates: start: 201303
  5. SOLUPRED [Concomitant]
     Indication: PREMEDICATION
     Route: 065
     Dates: start: 201303
  6. HYDROCORTISONE [Concomitant]
     Indication: PREMEDICATION
     Route: 065
     Dates: start: 20130307

REACTIONS (4)
  - Anaphylactic transfusion reaction [Recovered/Resolved]
  - Tuberculosis [Unknown]
  - Infusion related reaction [Recovered/Resolved]
  - Arthralgia [Unknown]
